FAERS Safety Report 4573050-2 (Version None)
Quarter: 2005Q1

REPORT INFORMATION
  Report Type: 
  Country: None (occurrence: None)
  Receive Date: 20050204
  Receipt Date: 20050117
  Transmission Date: 20050727
  Serious: Yes (Hospitalization, Disabling)
  Sender: FDA-Public Use
  Company Number: SHI_00011_2005

PATIENT
  Age: 57 Year
  Sex: Female

DRUGS (2)
  1. KEIMAX [Suspect]
     Indication: BRONCHITIS
     Dosage: PO
     Route: 048
     Dates: start: 19990823, end: 19990903
  2. KEIMAX [Suspect]
     Indication: OTITIS MEDIA
     Dosage: PO
     Route: 048
     Dates: start: 19990823, end: 19990903

REACTIONS (11)
  - BLOOD CULTURE POSITIVE [None]
  - COMA [None]
  - DEAFNESS [None]
  - DRUG INEFFECTIVE [None]
  - FACIAL PARESIS [None]
  - HEADACHE [None]
  - LUMBAR PUNCTURE ABNORMAL [None]
  - MENINGITIS BACTERIAL [None]
  - NAUSEA [None]
  - PNEUMOCOCCAL INFECTION [None]
  - PYREXIA [None]
